FAERS Safety Report 5093088-9 (Version None)
Quarter: 2006Q3

REPORT INFORMATION
  Report Type: 
  Country: None (occurrence: None)
  Receive Date: 20060828
  Receipt Date: 20060817
  Transmission Date: 20061208
  Serious: Yes (Hospitalization, Other)
  Sender: FDA-Public Use
  Company Number: GXKR2006DE04984

PATIENT
  Age: 73 Year
  Sex: Male

DRUGS (1)
  1. OMEP (NGX)(OMEPRAZOLE) UNKNOWN [Suspect]
     Indication: REFLUX OESOPHAGITIS
     Dosage: SEE IMAGE
     Route: 048
     Dates: start: 20001201

REACTIONS (9)
  - CANDIDIASIS [None]
  - CULTURE STOOL POSITIVE [None]
  - DIABETES MELLITUS [None]
  - GASTROINTESTINAL CANDIDIASIS [None]
  - OESOPHAGEAL CANDIDIASIS [None]
  - ORAL CANDIDIASIS [None]
  - PANCREATITIS [None]
  - PROCTALGIA [None]
  - PRURITUS ANI [None]
